FAERS Safety Report 9136841 (Version 1)
Quarter: 2013Q1

REPORT INFORMATION
  Report Type: Spontaneous
  Country: US (occurrence: US)
  Receive Date: 20130304
  Receipt Date: 20130304
  Transmission Date: 20140127
  Serious: No
  Sender: FDA-Public Use
  Company Number: US-ABBOTT-13P-163-1032209-00

PATIENT
  Sex: Male
  Weight: 93.07 kg

DRUGS (5)
  1. ANDROGEL [Suspect]
     Indication: BLOOD TESTOSTERONE DECREASED
     Dosage: 4 PUMP ACTUATIONS PER DAY
     Dates: start: 2009
  2. ALTACE [Concomitant]
     Indication: CARDIOVASCULAR EVENT PROPHYLAXIS
  3. TOPROL XL [Concomitant]
     Indication: CARDIAC DISORDER
  4. LIPITOR [Concomitant]
     Indication: BLOOD CHOLESTEROL INCREASED
  5. LOVAZA [Concomitant]
     Indication: BLOOD CHOLESTEROL INCREASED

REACTIONS (3)
  - Blood testosterone decreased [Not Recovered/Not Resolved]
  - Product quality issue [Unknown]
  - Drug ineffective [Unknown]
